FAERS Safety Report 17780499 (Version 1)
Quarter: 2020Q2

REPORT INFORMATION
  Report Type: Report from Study
  Country: US (occurrence: US)
  Receive Date: 20200514
  Receipt Date: 20200514
  Transmission Date: 20200714
  Serious: Yes (Hospitalization, Other)
  Sender: FDA-Public Use
  Company Number: US-ROCHE-2597587

PATIENT
  Age: 37 Year
  Sex: Female
  Weight: 56.75 kg

DRUGS (2)
  1. OCREVUS [Suspect]
     Active Substance: OCRELIZUMAB
     Indication: PRIMARY PROGRESSIVE MULTIPLE SCLEROSIS
     Dosage: 300 MG ON DAY 1 AND DAY 15, THEN 600 MG IN 6 MONTH?DATE OF TREATMENT: 15/AUG/2017, 17/JUN/2019 AND 1
     Route: 042
     Dates: start: 20170801
  2. GABAPENTIN. [Concomitant]
     Active Substance: GABAPENTIN
     Route: 048

REACTIONS (6)
  - Urinary tract infection [Recovered/Resolved]
  - Skin ulcer [Recovered/Resolved]
  - Bedridden [Not Recovered/Not Resolved]
  - Aspiration [Recovered/Resolved]
  - Multiple sclerosis [Not Recovered/Not Resolved]
  - Pneumonia [Recovered/Resolved]

NARRATIVE: CASE EVENT DATE: 20200429
